FAERS Safety Report 15916136 (Version 4)
Quarter: 2019Q2

REPORT INFORMATION
  Report Type: Report from Study
  Country: CH (occurrence: CH)
  Receive Date: 20190204
  Receipt Date: 20190603
  Transmission Date: 20190711
  Serious: Yes (Death, Hospitalization, Other)
  Sender: FDA-Public Use
  Company Number: PHHY2019CH001478

PATIENT
  Age: 74 Year
  Sex: Female
  Weight: 62 kg

DRUGS (8)
  1. PASPERTIN [Concomitant]
     Indication: NAUSEA
     Dosage: 10 MG, UNK
     Route: 048
     Dates: start: 20181030
  2. KISQALI [Suspect]
     Active Substance: RIBOCICLIB
     Dosage: 200 MG, QD
     Route: 065
     Dates: start: 20190103, end: 20190125
  3. ESOMEP [Concomitant]
     Active Substance: ESOMEPRAZOLE
     Indication: PROPHYLAXIS
     Dosage: 40 MG, UNK
     Route: 048
  4. LETROZOLE. [Suspect]
     Active Substance: LETROZOLE
     Dosage: 2.5 UNK, UNK
     Route: 065
     Dates: start: 20181214, end: 20190301
  5. SERTRALIN [Concomitant]
     Active Substance: SERTRALINE HYDROCHLORIDE
     Indication: DEPRESSION
     Dosage: 50 MG, UNK
     Route: 048
     Dates: start: 20181012
  6. XGEVA [Concomitant]
     Active Substance: DENOSUMAB
     Indication: BREAST CANCER
     Dosage: 120 MG, UNK
     Route: 058
     Dates: start: 20181030
  7. KISQALI [Suspect]
     Active Substance: RIBOCICLIB
     Indication: BREAST CANCER
     Dosage: 600 MG, UNK
     Route: 048
     Dates: start: 20181030, end: 20181212
  8. LETROZOLE. [Suspect]
     Active Substance: LETROZOLE
     Indication: BREAST CANCER
     Dosage: 2.5 MG, UNK
     Route: 065
     Dates: start: 20181012, end: 20181212

REACTIONS (6)
  - Ascites [Recovered/Resolved with Sequelae]
  - Disease progression [Fatal]
  - Diarrhoea [Recovered/Resolved with Sequelae]
  - Liver function test increased [Recovered/Resolved]
  - Vomiting [Recovered/Resolved with Sequelae]
  - Liver function test increased [Unknown]

NARRATIVE: CASE EVENT DATE: 20181106
